FAERS Safety Report 7154368-6 (Version None)
Quarter: 2010Q4

REPORT INFORMATION
  Report Type: 
  Country: None (occurrence: None)
  Receive Date: 20101213
  Receipt Date: 20101206
  Transmission Date: 20110411
  Serious: Yes (Hospitalization)
  Sender: FDA-Public Use
  Company Number: FR-BAXTER-2010BH029640

PATIENT
  Age: 79 Year
  Sex: Female

DRUGS (5)
  1. CYCLOPHOSPHAMIDE [Suspect]
     Indication: OVARIAN CANCER
     Route: 042
     Dates: start: 20101006, end: 20101006
  2. CISPLATIN [Suspect]
     Indication: OVARIAN CANCER
     Route: 042
     Dates: start: 20101006, end: 20101006
  3. METHYLPREDNISOLONE [Suspect]
     Indication: PREMEDICATION
     Route: 042
     Dates: start: 20101006, end: 20101006
  4. ONDANSETRON [Suspect]
     Indication: PREMEDICATION
     Route: 042
     Dates: start: 20101006, end: 20101006
  5. EMEND [Suspect]
     Indication: PREMEDICATION
     Route: 048
     Dates: start: 20101006, end: 20101006

REACTIONS (2)
  - FLUSHING [None]
  - PARAESTHESIA [None]
